FAERS Safety Report 8548414-2 (Version None)
Quarter: 2012Q3

REPORT INFORMATION
  Report Type: 
  Country: None (occurrence: None)
  Receive Date: 20120719
  Receipt Date: 20120719
  Transmission Date: 20120928
  Serious: Yes (Hospitalization)
  Sender: FDA-Public Use
  Company Number: None

PATIENT
  Age: 88 Year
  Sex: Female

DRUGS (1)
  1. LEVAQUIN [Suspect]
     Indication: PNEUMONIA
     Dates: start: 20120710, end: 20120715

REACTIONS (5)
  - DISORIENTATION [None]
  - RESTLESSNESS [None]
  - DEREALISATION [None]
  - SPEECH DISORDER [None]
  - ABNORMAL BEHAVIOUR [None]
